FAERS Safety Report 17676831 (Version 1)
Quarter: 2020Q2

REPORT INFORMATION
  Report Type: Spontaneous
  Country: US (occurrence: US)
  Receive Date: 20200416
  Receipt Date: 20200416
  Transmission Date: 20200714
  Serious: Yes (Other)
  Sender: FDA-Public Use
  Company Number: US-AKORN PHARMACEUTICALS-2020AKN00482

PATIENT
  Sex: Female

DRUGS (1)
  1. MYORISAN [Suspect]
     Active Substance: ISOTRETINOIN
     Dosage: UNK
     Dates: start: 20200106

REACTIONS (4)
  - Affect lability [Not Recovered/Not Resolved]
  - Dry skin [Not Recovered/Not Resolved]
  - Product dose omission [Unknown]
  - Lip dry [Not Recovered/Not Resolved]

NARRATIVE: CASE EVENT DATE: 2020
